FAERS Safety Report 5965059-9 (Version None)
Quarter: 2008Q4

REPORT INFORMATION
  Report Type: 
  Country: None (occurrence: None)
  Receive Date: 20081125
  Receipt Date: 20081118
  Transmission Date: 20090506
  Serious: Yes (Other)
  Sender: FDA-Public Use
  Company Number: BR-ASTRAZENECA-2008UW26025

PATIENT
  Age: 60 Year
  Sex: Female
  Weight: 70 kg

DRUGS (4)
  1. CRESTOR [Suspect]
     Indication: HYPERCHOLESTEROLAEMIA
     Route: 048
     Dates: start: 20080401, end: 20080701
  2. CRESTOR [Suspect]
     Route: 048
     Dates: start: 20080701, end: 20080901
  3. CRESTOR [Suspect]
     Route: 048
     Dates: start: 20081107
  4. SYNTHROID [Concomitant]
     Indication: HYPOTHYROIDISM
     Dosage: 88 MCG DAILY
     Route: 048
     Dates: start: 20050101

REACTIONS (5)
  - AMNESIA [None]
  - ARTHRALGIA [None]
  - FALL [None]
  - MYALGIA [None]
  - PRURITUS GENERALISED [None]
